FAERS Safety Report 9680776 (Version 2)
Quarter: 2014Q1

REPORT INFORMATION
  Report Type: Report from Study
  Country: US (occurrence: US)
  Receive Date: 20131111
  Receipt Date: 20140122
  Transmission Date: 20141002
  Serious: Yes (Death)
  Sender: FDA-Public Use
  Company Number: PHEH2013US023421

PATIENT
  Sex: Female
  Weight: 48.99 kg

DRUGS (1)
  1. TOBI [Suspect]
     Indication: CYSTIC FIBROSIS
     Dosage: 300 MG, BID
     Route: 055
     Dates: start: 20130513

REACTIONS (2)
  - Cystic fibrosis [Fatal]
  - Disease progression [Fatal]
